FAERS Safety Report 6318086-6 (Version None)
Quarter: 2009Q3

REPORT INFORMATION
  Report Type: 
  Country: None (occurrence: None)
  Receive Date: 20090821
  Receipt Date: 20090811
  Transmission Date: 20100115
  Serious: Yes (Other)
  Sender: FDA-Public Use
  Company Number: US-NOVOPROD-288223

PATIENT
  Age: 67 Year
  Sex: Female
  Weight: 64.86 kg

DRUGS (8)
  1. NOVOSEVEN [Suspect]
     Indication: FACTOR VIII DEFICIENCY
     Dosage: 5 MG Q 3HRS X2DOSES THEN
     Route: 042
     Dates: start: 20090607, end: 20090607
  2. NOVOSEVEN [Suspect]
     Dosage: 2 MG Q4HRS X24 DOSES
     Route: 042
     Dates: start: 20090607, end: 20090610
  3. VITAMIN K TAB [Concomitant]
     Indication: COAGULOPATHY
  4. PRILOSEC [Concomitant]
     Indication: DRUG USE FOR UNKNOWN INDICATION
     Route: 048
  5. ZOCOR [Concomitant]
     Indication: DYSLIPIDAEMIA
     Route: 048
  6. LOPRESSOR [Concomitant]
     Indication: DRUG USE FOR UNKNOWN INDICATION
     Route: 048
  7. NORCO [Concomitant]
     Indication: PAIN
     Dosage: UNK, PRN
     Route: 048
  8. ALBUTEROL [Concomitant]
     Indication: DRUG USE FOR UNKNOWN INDICATION
     Route: 055

REACTIONS (3)
  - ACTIVATED PARTIAL THROMBOPLASTIN TIME PROLONGED [None]
  - INTERNATIONAL NORMALISED RATIO INCREASED [None]
  - PROTHROMBIN TIME PROLONGED [None]
